FAERS Safety Report 5209990-0 (Version None)
Quarter: 2006Q4

REPORT INFORMATION
  Report Type: 
  Country: None (occurrence: None)
  Receive Date: 20061117
  Receipt Date: 20060706
  Transmission Date: 20070319
  Serious: Yes (Other)
  Sender: FDA-Public Use
  Company Number: 28772

PATIENT
  Age: 78 Year
  Sex: Female

DRUGS (1)
  1. ETOMIDATE [Suspect]
     Indication: INDUCTION OF ANAESTHESIA
     Dosage: 20MG/IV VIA PICC LINE
     Route: 042
     Dates: start: 20060702

REACTIONS (1)
  - DRUG INEFFECTIVE [None]
